FAERS Safety Report 9592260 (Version 2)
Quarter: 2013Q4

REPORT INFORMATION
  Report Type: Spontaneous
  Country: IT (occurrence: IT)
  Receive Date: 20131004
  Receipt Date: 20131125
  Transmission Date: 20140711
  Serious: Yes (Hospitalization)
  Sender: FDA-Public Use
  Company Number: IT-BRISTOL-MYERS SQUIBB COMPANY-19434042

PATIENT
  Age: 80 Year
  Sex: Male

DRUGS (1)
  1. COUMADIN TABS 5 MG [Suspect]
     Indication: AORTIC VALVE DISEASE
     Route: 048
     Dates: start: 20130829, end: 20130905

REACTIONS (1)
  - Dyspnoea [Recovering/Resolving]
